FAERS Safety Report 8943204 (Version 1)
Quarter: 2012Q4

REPORT INFORMATION
  Report Type: 
  Country: JP (occurrence: JP)
  Receive Date: 20121204
  Receipt Date: 20121204
  Transmission Date: 20130627
  Serious: Yes (Other)
  Sender: FDA-Public Use
  Company Number: PHHY2012JP110857

PATIENT
  Age: 76 Year
  Sex: Male

DRUGS (6)
  1. CICLOSPORIN [Suspect]
     Indication: GLOMERULONEPHRITIS MEMBRANOUS
     Dosage: 75 mg, BID
  2. CICLOSPORIN [Suspect]
     Dosage: 200 mg, per day
  3. METHYLPREDNISOLONE [Suspect]
     Indication: GLOMERULONEPHRITIS MEMBRANOUS
     Dosage: 0.5 g,  on day 03
     Route: 042
  4. METHYLPREDNISOLONE [Suspect]
     Dosage: 0.5 g, per day on day 36
     Route: 042
  5. PREDNISOLONE SODIUM PHOSPHATE [Suspect]
     Indication: GLOMERULONEPHRITIS MEMBRANOUS
     Dosage: 50 mg, UNK
  6. PRAVASTATIN [Concomitant]

REACTIONS (7)
  - Drug resistance [Unknown]
  - Nephrotic syndrome [Not Recovered/Not Resolved]
  - Glomerulonephritis membranous [Recovered/Resolved]
  - Proteinuria [Recovered/Resolved]
  - Renal impairment [Recovered/Resolved]
  - Generalised oedema [Recovered/Resolved]
  - Hypoalbuminaemia [Recovered/Resolved]
